FAERS Safety Report 11807156 (Version 1)
Quarter: 2015Q4

REPORT INFORMATION
  Report Type: Report from Study
  Country: US (occurrence: US)
  Receive Date: 20151207
  Receipt Date: 20151207
  Transmission Date: 20160305
  Serious: Yes (Death, Hospitalization, Other)
  Sender: FDA-Public Use
  Company Number: US-ASTELLAS-2015US045782

PATIENT
  Age: 79 Year
  Sex: Male

DRUGS (1)
  1. ERLOTINIB [Suspect]
     Active Substance: ERLOTINIB
     Indication: NON-SMALL CELL LUNG CANCER
     Route: 048
     Dates: start: 20120125

REACTIONS (5)
  - Chest pain [Unknown]
  - Vomiting [Unknown]
  - Death [Fatal]
  - Back pain [Unknown]
  - Oesophagitis [Unknown]

NARRATIVE: CASE EVENT DATE: 20120228
